FAERS Safety Report 5889978-7 (Version None)
Quarter: 2008Q3

REPORT INFORMATION
  Report Type: 
  Country: None (occurrence: None)
  Receive Date: 20080919
  Receipt Date: 20080909
  Transmission Date: 20090109
  Serious: Yes (Other)
  Sender: FDA-Public Use
  Company Number: US-PFIZER INC-2008076256

PATIENT
  Sex: Male
  Weight: 63.636 kg

DRUGS (2)
  1. DILANTIN [Suspect]
     Indication: CONVULSION
     Dates: end: 20080904
  2. VALSARTAN [Concomitant]
     Indication: HYPERTENSION

REACTIONS (4)
  - ANTICONVULSANT DRUG LEVEL DECREASED [None]
  - BLISTER [None]
  - HYPERSENSITIVITY [None]
  - OROPHARYNGEAL BLISTERING [None]
